FAERS Safety Report 6227491-8 (Version None)
Quarter: 2009Q2

REPORT INFORMATION
  Report Type: 
  Country: None (occurrence: None)
  Receive Date: 20090612
  Receipt Date: 20090605
  Transmission Date: 20091009
  Serious: Yes (Hospitalization)
  Sender: FDA-Public Use
  Company Number: PHHY2009BR20960

PATIENT
  Age: 25 Year
  Sex: Male
  Weight: 89 kg

DRUGS (9)
  1. CODATEN [Suspect]
     Indication: BONE PAIN
     Dosage: 1 DF, Q12H
     Dates: start: 20060101
  2. CODATEN [Suspect]
     Dosage: UNK
     Dates: start: 20070101
  3. CODATEN [Suspect]
     Dosage: 1 TABLET, Q12H
     Dates: start: 20090521
  4. TRAMADOL HCL [Concomitant]
     Dosage: 1 DF, Q8H
     Dates: start: 20060101
  5. TRAMADOL HCL [Concomitant]
     Dosage: UNK
     Dates: start: 20070101
  6. TRAMADOL HCL [Concomitant]
     Dosage: 1 DF, Q8H
     Dates: start: 20090521
  7. AMITRIPTLINE HYDROCHLORIDE TAB [Concomitant]
     Dosage: 1 DF, QD
     Dates: start: 20060101
  8. AMITRIPTLINE HYDROCHLORIDE TAB [Concomitant]
     Dosage: UNK
     Dates: start: 20070101
  9. AMITRIPTLINE HYDROCHLORIDE TAB [Concomitant]
     Dosage: 0.1 TAB/DAY
     Dates: start: 20090521

REACTIONS (5)
  - DRUG INEFFECTIVE [None]
  - HEADACHE [None]
  - NAUSEA [None]
  - SPINAL OPERATION [None]
  - VOMITING [None]
